FAERS Safety Report 9503280 (Version 2)
Quarter: 2013Q3

REPORT INFORMATION
  Report Type: Spontaneous
  Country: US (occurrence: US)
  Receive Date: 20130906
  Receipt Date: 20130920
  Transmission Date: 20140515
  Serious: Yes (Hospitalization)
  Sender: FDA-Public Use
  Company Number: US-TAKEDA-2013TUS000086

PATIENT
  Sex: 0

DRUGS (1)
  1. KAZANO [Suspect]
     Indication: TYPE 2 DIABETES MELLITUS
     Dosage: 12.5/500 MG,BID
     Route: 048
     Dates: start: 20130812, end: 20130812

REACTIONS (5)
  - Dyspnoea [Recovered/Resolved]
  - Chest pain [Recovered/Resolved]
  - Dizziness [Recovered/Resolved]
  - Palpitations [Recovered/Resolved]
  - Tremor [Recovered/Resolved]
